FAERS Safety Report 6023730-7 (Version None)
Quarter: 2008Q4

REPORT INFORMATION
  Report Type: 
  Country: None (occurrence: None)
  Receive Date: 20081230
  Receipt Date: 20081219
  Transmission Date: 20090506
  Serious: Yes (Hospitalization)
  Sender: FDA-Public Use
  Company Number: JP-ASTRAZENECA-2008AP09870

PATIENT
  Age: 28298 Day
  Sex: Male

DRUGS (6)
  1. MEROPEN [Suspect]
     Indication: POST PROCEDURAL INFECTION
     Route: 042
     Dates: start: 20081110, end: 20081112
  2. CARBENIN [Suspect]
     Indication: POST PROCEDURAL INFECTION
     Route: 041
     Dates: start: 20081102, end: 20081104
  3. CIPROXAN [Suspect]
     Indication: POST PROCEDURAL INFECTION
     Route: 041
     Dates: start: 20081104, end: 20081105
  4. CIPROXAN [Suspect]
     Dosage: NO TRADE NAME PROVIDED (CIPROFLOXACIN)
     Route: 041
     Dates: start: 20081106, end: 20081111
  5. PENTCILLIN [Concomitant]
     Indication: POST PROCEDURAL INFECTION
     Route: 042
     Dates: start: 20081028, end: 20081102
  6. CLIDAMACIN [Concomitant]
     Indication: POST PROCEDURAL INFECTION
     Route: 041
     Dates: start: 20081028, end: 20081102

REACTIONS (2)
  - INTERSTITIAL LUNG DISEASE [None]
  - LIVER DISORDER [None]
